FAERS Safety Report 9460913 (Version 1)
Quarter: 2013Q3

REPORT INFORMATION
  Report Type: Spontaneous
  Country: CA (occurrence: CA)
  Receive Date: 20130816
  Receipt Date: 20130816
  Transmission Date: 20140515
  Serious: Yes (Hospitalization, Other)
  Sender: FDA-Public Use
  Company Number: CA-BIOGENIDEC-2013BI073617

PATIENT
  Sex: Female

DRUGS (1)
  1. AVONEX [Suspect]
     Indication: MULTIPLE SCLEROSIS
     Route: 030
     Dates: start: 19990101

REACTIONS (9)
  - Procedural intestinal perforation [Unknown]
  - Partial seizures [Not Recovered/Not Resolved]
  - Feeling drunk [Recovered/Resolved]
  - Diplopia [Recovered/Resolved]
  - Road traffic accident [Recovered/Resolved]
  - Fall [Recovered/Resolved]
  - Upper limb fracture [Unknown]
  - Mobility decreased [Recovered/Resolved]
  - Feeling abnormal [Recovered/Resolved]
